FAERS Safety Report 13598130 (Version 2)
Quarter: 2018Q2

REPORT INFORMATION
  Report Type: Spontaneous
  Country: US (occurrence: US)
  Receive Date: 20170531
  Receipt Date: 20180405
  Transmission Date: 20180711
  Serious: No
  Sender: FDA-Public Use
  Company Number: PHEH2017US015958

PATIENT
  Sex: Female

DRUGS (2)
  1. VOTRIENT [Suspect]
     Active Substance: PAZOPANIB HYDROCHLORIDE
     Indication: THYROID CANCER
     Dosage: 200 MG, QID
     Route: 048
  2. VOTRIENT [Suspect]
     Active Substance: PAZOPANIB HYDROCHLORIDE
     Dosage: 2 DF, QD
     Route: 048

REACTIONS (6)
  - Diarrhoea [Not Recovered/Not Resolved]
  - Nausea [Unknown]
  - Fatigue [Unknown]
  - Oral discomfort [Not Recovered/Not Resolved]
  - Hair colour changes [Not Recovered/Not Resolved]
  - Abdominal pain upper [Not Recovered/Not Resolved]
